FAERS Safety Report 7157352-1 (Version None)
Quarter: 2010Q4

REPORT INFORMATION
  Report Type: 
  Country: None (occurrence: None)
  Receive Date: 20101214
  Receipt Date: 20101208
  Transmission Date: 20110411
  Serious: No
  Sender: FDA-Public Use
  Company Number: US-PFIZER INC-2010169019

PATIENT
  Age: 45 Year
  Sex: Female
  Weight: 51.3 kg

DRUGS (4)
  1. PRISTIQ [Suspect]
     Route: 048
     Dates: start: 20101205
  2. LUNESTA [Concomitant]
  3. XANAX [Concomitant]
     Dosage: FREQUENCY: AS NEEDED,
  4. VITAMINS [Concomitant]

REACTIONS (1)
  - NAUSEA [None]
